FAERS Safety Report 14032103 (Version 2)
Quarter: 2017Q4

REPORT INFORMATION
  Report Type: Spontaneous
  Country: BR (occurrence: BR)
  Receive Date: 20171002
  Receipt Date: 20171128
  Transmission Date: 20180321
  Serious: Yes (Other)
  Sender: FDA-Public Use
  Company Number: BR-PFIZER INC-2017414973

PATIENT
  Age: 33 Year
  Sex: Female

DRUGS (1)
  1. GENOTROPIN [Suspect]
     Active Substance: SOMATROPIN
     Dosage: UNK
     Dates: start: 20170606, end: 201708

REACTIONS (5)
  - Pharyngeal inflammation [Unknown]
  - Sinusitis [Unknown]
  - Rhinitis [Unknown]
  - Intentional product misuse [Unknown]
  - Immune system disorder [Unknown]

NARRATIVE: CASE EVENT DATE: 201707
